FAERS Safety Report 22079214 (Version 2)
Quarter: 2024Q2

REPORT INFORMATION
  Report Type: Spontaneous
  Country: US (occurrence: US)
  Receive Date: 20230309
  Receipt Date: 20240416
  Transmission Date: 20240716
  Serious: Yes (Hospitalization)
  Sender: FDA-Public Use
  Company Number: US-AMNEAL PHARMACEUTICALS-2023-AMRX-00694

PATIENT
  Sex: Female
  Weight: 11.383 kg

DRUGS (2)
  1. VIGABATRIN [Suspect]
     Active Substance: VIGABATRIN
     Indication: Illness
     Dosage: 750 MG IN AM 250 MG IN PM DAILY
     Route: 065
  2. VIGABATRIN [Suspect]
     Active Substance: VIGABATRIN
     Indication: Seizure
     Dosage: MIX 1 PACKET IN 10 ML OF WATER AND GIVE/TAKE 10 ML (500 MG), 2 /DAY
     Route: 065
     Dates: end: 202312

REACTIONS (2)
  - Adverse event [Unknown]
  - Visual field defect [Unknown]
